FAERS Safety Report 8432653-5 (Version None)
Quarter: 2012Q2

REPORT INFORMATION
  Report Type: 
  Country: None (occurrence: None)
  Receive Date: 20120613
  Receipt Date: 20120605
  Transmission Date: 20120825
  Serious: Yes (Hospitalization)
  Sender: FDA-Public Use
  Company Number: US-BAYER-2012-055754

PATIENT
  Age: 31 Year
  Sex: Female
  Weight: 122 kg

DRUGS (8)
  1. SYNTHROID [Concomitant]
  2. ADVIL [Concomitant]
  3. ZOCOR [Concomitant]
  4. CELEXA [Concomitant]
  5. LEVOTHYROXINE SODIUM [Concomitant]
  6. YAZ [Suspect]
     Indication: MENSTRUATION IRREGULAR
  7. YAZ [Suspect]
     Indication: ACNE
     Dosage: UNK
     Dates: start: 20100801, end: 20101025
  8. YAZ [Suspect]
     Indication: PREMENSTRUAL SYNDROME

REACTIONS (19)
  - PULMONARY EMBOLISM [None]
  - COLITIS [None]
  - BUNDLE BRANCH BLOCK RIGHT [None]
  - MENTAL DISORDER [None]
  - PAIN IN EXTREMITY [None]
  - DYSPNOEA [None]
  - ANXIETY [None]
  - CHEST PAIN [None]
  - OEDEMA PERIPHERAL [None]
  - INJURY [None]
  - ERYTHEMA [None]
  - TENSION [None]
  - DEPRESSION [None]
  - DEEP VEIN THROMBOSIS [None]
  - PAIN [None]
  - TACHYCARDIA [None]
  - STRESS [None]
  - TENSION HEADACHE [None]
  - ARTHRALGIA [None]
